FAERS Safety Report 5213825-X (Version None)
Quarter: 2007Q1

REPORT INFORMATION
  Report Type: 
  Country: None (occurrence: None)
  Receive Date: 20070119
  Receipt Date: 20061119
  Transmission Date: 20070707
  Serious: Yes (Death, Life-Threatening, Hospitalization, Other)
  Sender: FDA-Public Use
  Company Number: US-PFIZER INC-2005097345

PATIENT
  Sex: Female
  Weight: 54 kg

DRUGS (6)
  1. BEXTRA [Suspect]
     Indication: NECK PAIN
     Route: 048
     Dates: start: 20020101, end: 20030516
  2. BEXTRA [Suspect]
     Indication: MUSCULOSKELETAL PAIN
  3. HYDROCHLOROTHIAZIDE [Concomitant]
     Route: 048
  4. PREMARIN [Concomitant]
     Route: 048
  5. TRICOR [Concomitant]
     Route: 048
  6. CLIDINIUM [Concomitant]
     Route: 065

REACTIONS (1)
  - MYOCARDIAL INFARCTION [None]
